FAERS Safety Report 4732590-3 (Version None)
Quarter: 2005Q3

REPORT INFORMATION
  Report Type: 
  Country: None (occurrence: None)
  Receive Date: 20050803
  Receipt Date: 20050722
  Transmission Date: 20060218
  Serious: Yes (Other)
  Sender: FDA-Public Use
  Company Number: US-JNJFOC-20050704770

PATIENT
  Sex: Female
  Weight: 70.31 kg

DRUGS (3)
  1. REMICADE [Suspect]
     Indication: CROHN'S DISEASE
  2. BIRTH CONTROL [Concomitant]
  3. ZYRTEC [Concomitant]
     Dosage: AS NEEDED

REACTIONS (4)
  - CHOLECYSTECTOMY [None]
  - CLOSTRIDIAL INFECTION [None]
  - CROHN'S DISEASE [None]
  - KIDNEY INFECTION [None]
